FAERS Safety Report 18984112 (Version 4)
Quarter: 2023Q2

REPORT INFORMATION
  Report Type: Report from Study
  Country: SE (occurrence: None)
  Receive Date: 20210309
  Receipt Date: 20230510
  Transmission Date: 20230722
  Serious: Yes (Hospitalization)
  Sender: FDA-Public Use
  Company Number: SE-ROCHE-2775791

PATIENT
  Age: 54 Year
  Sex: Female
  Weight: 101 kg

DRUGS (9)
  1. ATEZOLIZUMAB [Suspect]
     Active Substance: ATEZOLIZUMAB
     Indication: Cervix carcinoma recurrent
     Dosage: MOST RECENT DOSE: 12/JAN/2021
     Route: 041
     Dates: start: 20210112
  2. BEVACIZUMAB [Suspect]
     Active Substance: BEVACIZUMAB
     Indication: Cervix carcinoma recurrent
     Dosage: MOST RECENT DOSE: 12/JAN/2021 (1315 MG)
     Route: 042
     Dates: start: 20210112
  3. PACLITAXEL [Suspect]
     Active Substance: PACLITAXEL
     Indication: Cervix carcinoma recurrent
     Dosage: MOST RECENT DOSE: 13/JAN/2021
     Route: 065
     Dates: start: 20210113
  4. CISPLATIN [Suspect]
     Active Substance: CISPLATIN
     Indication: Cervix carcinoma recurrent
     Dosage: MOST RECENT DOSE: 13/JAN/2021
     Route: 065
     Dates: start: 20210113
  5. AMOXICILLIN [Concomitant]
     Active Substance: AMOXICILLIN
     Indication: Prophylaxis
     Route: 048
     Dates: start: 20210203, end: 20210210
  6. PYRIDOXINE [Concomitant]
     Active Substance: PYRIDOXINE
     Indication: Neuropathy peripheral
     Route: 048
     Dates: start: 20210119, end: 20210225
  7. DESLORATADINE [Concomitant]
     Active Substance: DESLORATADINE
     Indication: Prophylaxis
     Route: 048
     Dates: start: 20210111
  8. OMEPRAZOLE [Concomitant]
     Active Substance: OMEPRAZOLE
     Indication: Prophylaxis
     Route: 048
     Dates: start: 20210111
  9. OXYCODONE [Concomitant]
     Active Substance: OXYCODONE
     Indication: Pain
     Route: 048
     Dates: start: 20210108

REACTIONS (1)
  - Infection [Recovered/Resolved]

NARRATIVE: CASE EVENT DATE: 20210217
